FAERS Safety Report 7272711-4 (Version None)
Quarter: 2010Q4

REPORT INFORMATION
  Report Type: 
  Country: None (occurrence: None)
  Receive Date: 20101208
  Receipt Date: 20100225
  Transmission Date: 20110411
  Serious: Yes (Hospitalization)
  Sender: FDA-Public Use
  Company Number: 1000012061

PATIENT
  Age: 84 Year
  Sex: Male

DRUGS (5)
  1. NAMENDA [Suspect]
     Indication: DEMENTIA ALZHEIMER'S TYPE
  2. NAMENDA [Suspect]
     Indication: PROPHYLAXIS
  3. ARICEPT [Concomitant]
  4. LASIX [Concomitant]
  5. ASPIRIN [Concomitant]

REACTIONS (4)
  - FALL [None]
  - GASTROINTESTINAL HAEMORRHAGE [None]
  - NAUSEA [None]
  - VOMITING [None]
